FAERS Safety Report 8437180-7 (Version None)
Quarter: 2012Q2

REPORT INFORMATION
  Report Type: 
  Country: None (occurrence: None)
  Receive Date: 20120614
  Receipt Date: 20120426
  Transmission Date: 20120825
  Serious: No
  Sender: FDA-Public Use
  Company Number: US-AMGEN-USASP2012018483

PATIENT
  Age: 77 Year
  Sex: Female
  Weight: 54.331 kg

DRUGS (2)
  1. PROLIA [Suspect]
     Indication: OSTEOPOROSIS POSTMENOPAUSAL
     Dosage: UNK
     Route: 058
     Dates: start: 20110801, end: 20120313
  2. PRILOSEC [Concomitant]
     Dosage: 20 MG, QD

REACTIONS (3)
  - MYALGIA [None]
  - RASH [None]
  - HEADACHE [None]
